FAERS Safety Report 18149486 (Version 1)
Quarter: 2020Q3

REPORT INFORMATION
  Report Type: Report from Study
  Country: US (occurrence: US)
  Receive Date: 20200814
  Receipt Date: 20200814
  Transmission Date: 20201103
  Serious: Yes (Other)
  Sender: FDA-Public Use
  Company Number: US-GLAXOSMITHKLINE-US2019TSO199614

PATIENT
  Sex: Female
  Weight: 60.18 kg

DRUGS (3)
  1. NIRAPARIB [Suspect]
     Active Substance: NIRAPARIB
     Dosage: 200 MG, QD
     Route: 048
     Dates: end: 20200807
  2. NIRAPARIB [Suspect]
     Active Substance: NIRAPARIB
     Dosage: 200 MG, QD
     Route: 048
  3. NIRAPARIB [Suspect]
     Active Substance: NIRAPARIB
     Indication: OVARIAN CANCER
     Dosage: 200 MG, QD
     Route: 048
     Dates: start: 20191021

REACTIONS (9)
  - Malaise [Unknown]
  - Heart rate increased [Unknown]
  - Malignant neoplasm progression [Unknown]
  - Nausea [Unknown]
  - Migraine [Unknown]
  - Headache [Unknown]
  - Blood pressure increased [Unknown]
  - Abdominal discomfort [Unknown]
  - Fatigue [Unknown]
